FAERS Safety Report 9336291 (Version 3)
Quarter: 2013Q3

REPORT INFORMATION
  Report Type: Spontaneous
  Country: US (occurrence: US)
  Receive Date: 20130607
  Receipt Date: 20130823
  Transmission Date: 20140515
  Serious: Yes (Hospitalization, Other)
  Sender: FDA-Public Use
  Company Number: US-AMGEN-USASP2013039803

PATIENT
  Age: 71 Year
  Sex: Male

DRUGS (7)
  1. ENBREL [Suspect]
     Indication: PSORIASIS
     Dosage: 25 MG, 2 TIMES/WK
     Route: 065
     Dates: start: 20101001
  2. ENBREL [Suspect]
     Indication: ARTHRITIS
  3. LISINOPRIL/HCTZ [Concomitant]
     Dosage: UNK
  4. GLIMEPIRIDE [Concomitant]
     Dosage: UNK
  5. ATORVASTATIN [Concomitant]
     Dosage: UNK
  6. ONGLYZA [Concomitant]
     Dosage: UNK
  7. METFORMIN [Concomitant]
     Dosage: UNK

REACTIONS (5)
  - Hepatocellular carcinoma [Not Recovered/Not Resolved]
  - Asthenia [Not Recovered/Not Resolved]
  - Arthritis [Not Recovered/Not Resolved]
  - Musculoskeletal stiffness [Not Recovered/Not Resolved]
  - Psoriasis [Not Recovered/Not Resolved]
